FAERS Safety Report 18106097 (Version 1)
Quarter: 2020Q3

REPORT INFORMATION
  Report Type: Spontaneous
  Country: DE (occurrence: DE)
  Receive Date: 20200803
  Receipt Date: 20200803
  Transmission Date: 20201103
  Serious: Yes (Other)
  Sender: FDA-Public Use
  Company Number: NVSC2020DE214512

PATIENT
  Sex: Female

DRUGS (21)
  1. VALSARTAN HEXAL 80 MG FILMTABLETTEN [Suspect]
     Active Substance: VALSARTAN
     Indication: PRODUCT USED FOR UNKNOWN INDICATION
     Dosage: 2 DF, QD
     Route: 065
     Dates: start: 20130610, end: 20130612
  2. VALSARTAN. [Concomitant]
     Active Substance: VALSARTAN
     Dosage: 1 DF, QD
     Route: 065
     Dates: start: 20170714, end: 20170717
  3. DIOVAN [Suspect]
     Active Substance: VALSARTAN
     Indication: PRODUCT USED FOR UNKNOWN INDICATION
     Dosage: 2 DF, QD
     Route: 065
     Dates: start: 20140612, end: 20140618
  4. VALSARTAN. [Suspect]
     Active Substance: VALSARTAN
     Dosage: 2 DF, QD
     Route: 065
     Dates: start: 20150701, end: 20150731
  5. VALSARTAN. [Concomitant]
     Active Substance: VALSARTAN
     Indication: PRODUCT USED FOR UNKNOWN INDICATION
     Dosage: 1 DF, QD
     Route: 065
     Dates: start: 20171005, end: 20171016
  6. VALSARTAN. [Suspect]
     Active Substance: VALSARTAN
     Indication: PRODUCT USED FOR UNKNOWN INDICATION
     Dosage: 1 DF, QD
     Route: 065
     Dates: start: 20160913
  7. VALSARTAN. [Suspect]
     Active Substance: VALSARTAN
     Dosage: 2 DF, QD
     Route: 065
     Dates: start: 20160411
  8. VALSARTAN HEUMANN [Concomitant]
     Active Substance: VALSARTAN
     Dosage: 2 UNK
     Route: 065
     Dates: start: 20170503, end: 20170505
  9. VALSARTAN. [Suspect]
     Active Substance: VALSARTAN
     Indication: PRODUCT USED FOR UNKNOWN INDICATION
     Dosage: 2 DF, QD
     Route: 065
     Dates: start: 20151020
  10. VALSARTAN. [Suspect]
     Active Substance: VALSARTAN
     Dosage: 1 DF, QD
     Route: 065
     Dates: start: 20140929, end: 20141001
  11. VALSARTAN. [Suspect]
     Active Substance: VALSARTAN
     Dosage: 2 DF, QD
     Route: 065
     Dates: start: 20150330
  12. VALSARTAN. [Concomitant]
     Active Substance: VALSARTAN
     Dosage: 1 DF, QD
     Route: 065
     Dates: start: 20170109, end: 20170110
  13. VALSARTAN. [Suspect]
     Active Substance: VALSARTAN
     Dosage: 2 DF, QD
     Route: 065
     Dates: start: 20160621, end: 20160622
  14. VALSARTAN HEXAL 80 MG FILMTABLETTEN [Suspect]
     Active Substance: VALSARTAN
     Dosage: 2 DF, QD
     Route: 065
     Dates: start: 20130408, end: 20130416
  15. VALSARTAN. [Suspect]
     Active Substance: VALSARTAN
     Dosage: 2 DF, QD
     Route: 065
     Dates: start: 20150821, end: 20150930
  16. VALSARTAN. [Suspect]
     Active Substance: VALSARTAN
     Dosage: 2 DF, QD
     Route: 065
     Dates: start: 20141021, end: 20141023
  17. VALSARTAN. [Concomitant]
     Active Substance: VALSARTAN
     Dosage: 1 DF, QD
     Route: 065
     Dates: start: 20180417, end: 20180426
  18. VALSARTAN. [Suspect]
     Active Substance: VALSARTAN
     Indication: PRODUCT USED FOR UNKNOWN INDICATION
     Dosage: 2 DF, QD
     Route: 065
     Dates: start: 20160225
  19. VALSARTAN. [Suspect]
     Active Substance: VALSARTAN
     Dosage: 1 DF, QD
     Route: 065
     Dates: start: 20160704, end: 20160705
  20. DIOVAN [Suspect]
     Active Substance: VALSARTAN
     Dosage: 2 DF, QD
     Route: 065
     Dates: start: 20130920, end: 20140214
  21. VALSARTAN HEUMANN [Concomitant]
     Active Substance: VALSARTAN
     Indication: PRODUCT USED FOR UNKNOWN INDICATION
     Dosage: 1 DF, QD
     Route: 065
     Dates: start: 20170503, end: 20170505

REACTIONS (6)
  - Fear of disease [Unknown]
  - Depression [Unknown]
  - Mental impairment [Unknown]
  - Panic attack [Unknown]
  - Loss of personal independence in daily activities [Unknown]
  - Sleep disorder [Unknown]
